FAERS Safety Report 9445502 (Version 1)
Quarter: 2013Q3

REPORT INFORMATION
  Report Type: Spontaneous
  Country: US (occurrence: US)
  Receive Date: 20130807
  Receipt Date: 20130807
  Transmission Date: 20140515
  Serious: No
  Sender: FDA-Public Use
  Company Number: US-BAYER-2013-095860

PATIENT
  Age: 90 Year
  Sex: Female
  Weight: 50.79 kg

DRUGS (3)
  1. ALEVE CAPLET [Suspect]
     Indication: ARTHRITIS
     Dosage: 2 DF, QD
     Route: 048
     Dates: start: 2012
  2. DIOVAN [Concomitant]
  3. ISOSORB MONO [Concomitant]

REACTIONS (1)
  - Incorrect drug administration duration [Not Recovered/Not Resolved]
